FAERS Safety Report 5030555-8 (Version None)
Quarter: 2006Q2

REPORT INFORMATION
  Report Type: 
  Country: None (occurrence: None)
  Receive Date: 20060615
  Receipt Date: 20060530
  Transmission Date: 20061013
  Serious: Yes (Death)
  Sender: FDA-Public Use
  Company Number: 0510019

PATIENT
  Sex: Female
  Weight: 0.4536 kg

DRUGS (1)
  1. ORFADIN [Suspect]
     Indication: TYROSINAEMIA
     Dosage: 2MG/KG MG/KG/DAY ORAL
     Route: 048
     Dates: start: 20051003, end: 20051030

REACTIONS (4)
  - ACIDOSIS [None]
  - CARDIAC FAILURE [None]
  - CARDIOMYOPATHY [None]
  - HEPATOMEGALY [None]
